FAERS Safety Report 9387577 (Version 5)
Quarter: 2013Q3

REPORT INFORMATION
  Report Type: Spontaneous
  Country: DE (occurrence: None)
  Receive Date: 20130620
  Receipt Date: 20130827
  Transmission Date: 20140515
  Serious: Yes (Life-Threatening, Hospitalization, Other)
  Sender: FDA-Public Use
  Company Number: 2013036510

PATIENT
  Age: 76 Year
  Sex: Male

DRUGS (7)
  1. BERIPLEX [Suspect]
     Indication: COAGULOPATHY
     Dosage: 500 IU BID, DOSE: 2X 500 IU, INTRAVENOUS (NOT OTHERWISE SPECIFIED)
     Route: 042
     Dates: start: 20130605
  2. BERIPLEX [Suspect]
     Indication: HAEMORRHAGE
     Dosage: 500 IU BID, DOSE: 2X 500 IU, INTRAVENOUS (NOT OTHERWISE SPECIFIED)
     Route: 042
     Dates: start: 20130605
  3. BERIPLEX [Suspect]
     Indication: HEPATIC CIRRHOSIS
     Dosage: 500 IU BID, DOSE: 2X 500 IU, INTRAVENOUS (NOT OTHERWISE SPECIFIED)
     Route: 042
     Dates: start: 20130605
  4. HUMAN ALBUMIN 20% [Suspect]
     Indication: ASCITES
     Dosage: 100 ML (3 TIMES A DAY: IN THE MORNING, MIDDAY, AND IN THE EVENING), INTRAVENOUS (NOT OTHERWISE SPECIFIED)
     Route: 042
  5. HUMAN ALBUMIN 20% [Suspect]
     Indication: HYPOALBUMINAEMIA
     Dosage: 100 ML (3 TIMES A DAY: IN THE MORNING, MIDDAY, AND IN THE EVENING), INTRAVENOUS (NOT OTHERWISE SPECIFIED)
     Route: 042
  6. HUMAN ALBUMIN 20% [Suspect]
     Indication: HEPATIC CIRRHOSIS
     Dosage: 100 ML (3 TIMES A DAY: IN THE MORNING, MIDDAY, AND IN THE EVENING), INTRAVENOUS (NOT OTHERWISE SPECIFIED)
     Route: 042
  7. HUMAN ALBUMIN 20% [Suspect]
     Dosage: 100 ML (3 TIMES A DAY: IN THE MORNING, MIDDAY, AND IN THE EVENING), INTRAVENOUS (NOT OTHERWISE SPECIFIED)
     Route: 042

REACTIONS (8)
  - Suspected transmission of an infectious agent via product [None]
  - Septic shock [None]
  - Shock [None]
  - Pyrexia [None]
  - Dyspnoea [None]
  - Haematemesis [None]
  - Enterococcal sepsis [None]
  - Staphylococcal sepsis [None]
